FAERS Safety Report 6229706-9 (Version None)
Quarter: 2009Q2

REPORT INFORMATION
  Report Type: 
  Country: None (occurrence: None)
  Receive Date: 20090615
  Receipt Date: 20090608
  Transmission Date: 20091009
  Serious: Yes (Hospitalization)
  Sender: FDA-Public Use
  Company Number: FR-MERCK-0904USA01559

PATIENT
  Age: 95 Year
  Sex: Female

DRUGS (6)
  1. MODURETIC 5-50 [Suspect]
     Indication: DIURETIC THERAPY
     Route: 048
     Dates: end: 20090228
  2. NICARDIPINE HCL [Suspect]
     Route: 048
     Dates: end: 20090228
  3. FLECAINIDE ACETATE [Interacting]
     Indication: ARRHYTHMIA
     Route: 048
  4. PREVISCAN [Concomitant]
     Route: 065
  5. SERC [Concomitant]
     Route: 065
  6. AMOXIBRON (AMOXICILLIN) [Concomitant]
     Route: 065
     Dates: start: 20090227

REACTIONS (3)
  - DRUG INTERACTION [None]
  - FALL [None]
  - HYPOTENSION [None]
